FAERS Safety Report 14498191 (Version 1)
Quarter: 2018Q1

REPORT INFORMATION
  Report Type: Spontaneous
  Country: GB (occurrence: GB)
  Receive Date: 20180207
  Receipt Date: 20180207
  Transmission Date: 20180509
  Serious: Yes (Disabling)
  Sender: FDA-Public Use
  Company Number: GB-PFIZER INC-2018049189

PATIENT
  Age: 64 Year
  Sex: Female
  Weight: 94 kg

DRUGS (17)
  1. AMITRIPTYLINE HYDROCHLORIDE. [Concomitant]
     Active Substance: AMITRIPTYLINE HYDROCHLORIDE
     Dosage: TAKE 2-3 TABLETS  AT NIGHT
     Dates: start: 20170901
  2. HYDROCORTISONE. [Concomitant]
     Active Substance: HYDROCORTISONE
     Indication: BREAST DISORDER
     Dosage: 2 DF ONCE A DAY, APPLY TWICE DAILY
     Dates: start: 20170803
  3. DOCUSATE SODIUM. [Concomitant]
     Active Substance: DOCUSATE SODIUM
     Dosage: 1 DF 4-5 A DAY IF NEEDED IN DIVIDED DOSES
     Dates: start: 20090610
  4. COLECALCIFEROL [Concomitant]
     Active Substance: CHOLECALCIFEROL
     Indication: VITAMIN D DEFICIENCY
     Dosage: 1 DF, 1X/DAY
     Dates: start: 20170427
  5. RAMIPRIL. [Concomitant]
     Active Substance: RAMIPRIL
     Dosage: 1 DF, 1X/DAY
     Dates: start: 20170322
  6. MIRABEGRON [Concomitant]
     Active Substance: MIRABEGRON
     Dosage: 1 DF, 1X/DAY
     Dates: start: 20161007
  7. OMEPRAZOLE. [Concomitant]
     Active Substance: OMEPRAZOLE
     Dosage: 1 DF, 1X/DAY
     Dates: start: 20110713
  8. PARACETAMOL [Concomitant]
     Active Substance: ACETAMINOPHEN
     Dosage: 8 DF, 1X/DAY
     Dates: start: 20160504
  9. OPTIVE [Concomitant]
     Active Substance: CARBOXYMETHYLCELLULOSE SODIUM\GLYCERIN
     Dosage: 1 DF USE AS DIRECTED
     Dates: start: 20140204
  10. ZOMORPH [Concomitant]
     Active Substance: MORPHINE SULFATE
     Dosage: 2 DF ONCE EVERY 12 HOURS
     Dates: start: 20161223
  11. MORPHINE SULFATE. [Concomitant]
     Active Substance: MORPHINE SULFATE
     Dosage: 5 ML, 1X/DAY
     Dates: start: 20140501
  12. LEVOTHYROXINE. [Concomitant]
     Active Substance: LEVOTHYROXINE
     Dosage: 2 DF, 1X/DAY
     Dates: start: 20150803
  13. SYMBICORT [Concomitant]
     Active Substance: BUDESONIDE\FORMOTEROL FUMARATE DIHYDRATE
     Dosage: 1 DF TO USE AS DIRECTED
     Dates: start: 20160720
  14. DOXYCYCLINE MONOHYDRATE [Suspect]
     Active Substance: DOXYCYCLINE
     Dosage: UNK
     Dates: start: 20180115
  15. VISCOTEARS [Concomitant]
     Active Substance: CARBOMER
     Dosage: 1 GTT, 1X/DAY
     Dates: start: 20151103
  16. FUROSEMIDE. [Concomitant]
     Active Substance: FUROSEMIDE
     Dosage: 1 DF, 1X/DAY,EACH MORNING
     Dates: start: 20110525
  17. DIFFLAM [Concomitant]
     Active Substance: BENZYDAMINE HYDROCHLORIDE
     Dosage: 1 DF EVERY 3 HOURS
     Dates: start: 20180103, end: 20180108

REACTIONS (2)
  - Vomiting [Recovered/Resolved]
  - Tremor [Unknown]

NARRATIVE: CASE EVENT DATE: 20180115
